FAERS Safety Report 13374585 (Version 2)
Quarter: 2017Q2

REPORT INFORMATION
  Report Type: Report from Study
  Country: KR (occurrence: KR)
  Receive Date: 20170327
  Receipt Date: 20170413
  Transmission Date: 20170830
  Serious: Yes (Hospitalization)
  Sender: FDA-Public Use
  Company Number: KR-PFIZER INC-2017123352

PATIENT
  Age: 42 Year
  Sex: Female
  Weight: 45.9 kg

DRUGS (22)
  1. BESZYME [Concomitant]
     Indication: PROPHYLAXIS
     Dosage: 30 MG, AS NEEDED
     Route: 048
     Dates: start: 20170209
  2. MSB0010718C [Suspect]
     Active Substance: AVELUMAB
     Indication: OVARIAN CANCER
     Dosage: 474 MG(10MG/KG), CYCLIC(EVERY 3 WEEKS)
     Route: 042
     Dates: start: 20170208
  3. DUPHALAC EASY [Concomitant]
     Indication: CONSTIPATION
     Dosage: 1.34 G, AS NEEDED
     Route: 048
     Dates: start: 20170209
  4. NEURONTIN [Concomitant]
     Active Substance: GABAPENTIN
     Indication: PROPHYLAXIS
     Dosage: 300 MG, AS NEEDED
     Route: 048
     Dates: start: 20170209
  5. CARBOPLATIN. [Suspect]
     Active Substance: CARBOPLATIN
     Indication: OVARIAN CANCER
     Dosage: 515 MG(AUC6), CYCLIC(EVERY 3 WEEKS)
     Route: 042
     Dates: start: 20170208
  6. AMLODIPINE [Concomitant]
     Active Substance: AMLODIPINE BESYLATE
     Indication: HYPERTENSION
     Dosage: 2.5 MG, 1X/DAY
     Route: 048
     Dates: start: 2013
  7. CELEBREX [Concomitant]
     Active Substance: CELECOXIB
     Indication: SPINAL PAIN
     Dosage: 100 MG, AS NEEDED
     Route: 048
     Dates: start: 20170208
  8. DEXAMETHASONE DISODIUM PHOSPHATE [Concomitant]
     Active Substance: DEXAMETHASONE SODIUM PHOSPHATE
     Indication: PROPHYLAXIS
     Dosage: 20 MG, 1X/DAY
     Route: 042
     Dates: start: 20170303, end: 20170303
  9. PALONOSETRON HCL [Concomitant]
     Active Substance: PALONOSETRON HYDROCHLORIDE
     Indication: PROPHYLAXIS
     Dosage: 0.25 MG, 1X/DAY
     Route: 042
     Dates: start: 20170303, end: 20170303
  10. VITIS VINIFERA EXTRACT [Concomitant]
     Indication: PROPHYLAXIS
     Dosage: 150 MG, 2X/DAY
     Route: 048
     Dates: start: 20170201, end: 20170303
  11. SUSPEN ER [Concomitant]
     Indication: PROPHYLAXIS
     Dosage: 650 MG, AS NEEDED
     Route: 048
     Dates: start: 20170209
  12. CHLORPHENIRAMINE MALEATE. [Concomitant]
     Active Substance: CHLORPHENIRAMINE MALEATE
     Indication: PROPHYLAXIS
     Dosage: 2 MG, 1X/DAY
     Route: 048
     Dates: start: 20170303, end: 20170303
  13. DARBEPOETIN ALFA [Concomitant]
     Active Substance: DARBEPOETIN ALFA
     Indication: PROPHYLAXIS
     Dosage: 120 UG, 1X/DAY
     Route: 058
     Dates: start: 20170302, end: 20170302
  14. PACLITAXEL. [Suspect]
     Active Substance: PACLITAXEL
     Indication: OVARIAN CANCER
     Dosage: 245 MG(175MG/M2), CYCLIC(EVERY 3 WEEKS)
     Route: 042
     Dates: start: 20170208
  15. CIMETIDINE [Concomitant]
     Active Substance: CIMETIDINE
     Indication: PROPHYLAXIS
     Dosage: 200 MG, 1X/DAY
     Route: 042
     Dates: start: 20170303, end: 20170303
  16. METOCLOPRAMIDE HCL [Concomitant]
     Active Substance: METOCLOPRAMIDE HYDROCHLORIDE
     Indication: PROPHYLAXIS OF NAUSEA AND VOMITING
     Dosage: 10 MG, AS NEEDED
     Route: 048
     Dates: start: 20170209
  17. MAGNESIUM OXIDE. [Concomitant]
     Active Substance: MAGNESIUM OXIDE
     Indication: CONSTIPATION
     Dosage: 500 MG, AS NEEDED
     Route: 048
     Dates: start: 20170208
  18. SUSPEN ER [Concomitant]
     Indication: PROPHYLAXIS
     Dosage: 1300 MG, 1X/DAY
     Route: 048
     Dates: start: 20170303, end: 20170313
  19. RANITIDINE HCL [Concomitant]
     Active Substance: RANITIDINE HYDROCHLORIDE
     Indication: PROPHYLAXIS
     Dosage: 150 MG, AS NEEDED
     Route: 048
     Dates: start: 20170209
  20. VITIS VINIFERA EXTRACT [Concomitant]
     Dosage: 150 MG, 1X/DAY
     Route: 048
     Dates: start: 20170304, end: 20170304
  21. LOSARTAN POTASSIUM. [Concomitant]
     Active Substance: LOSARTAN POTASSIUM
     Indication: HYPERTENSION
     Dosage: 50 MG, 1X/DAY
     Route: 048
     Dates: start: 2013
  22. CHLORPHENIRAMINE MALEATE. [Concomitant]
     Active Substance: CHLORPHENIRAMINE MALEATE
     Dosage: 4 MG, 1X/DAY
     Route: 042
     Dates: start: 20170303, end: 20170303

REACTIONS (1)
  - Pseudomembranous colitis [Recovered/Resolved]

NARRATIVE: CASE EVENT DATE: 20170314
